FAERS Safety Report 7527667-3 (Version None)
Quarter: 2011Q2

REPORT INFORMATION
  Report Type: 
  Country: None (occurrence: None)
  Receive Date: 20110607
  Receipt Date: 20110525
  Transmission Date: 20111010
  Serious: Yes (Hospitalization, Other)
  Sender: FDA-Public Use
  Company Number: US-ASTRAZENECA-2011SE32263

PATIENT
  Age: 55 Year
  Sex: Female

DRUGS (2)
  1. PRILOSEC [Concomitant]
  2. NEXIUM [Suspect]
     Route: 048
     Dates: start: 20010101

REACTIONS (3)
  - SPINAL FRACTURE [None]
  - ANKLE FRACTURE [None]
  - BONE DENSITY DECREASED [None]
